FAERS Safety Report 16055292 (Version 4)
Quarter: 2019Q1

REPORT INFORMATION
  Report Type: Report from Study
  Country: CA (occurrence: CA)
  Receive Date: 20190311
  Receipt Date: 20190319
  Transmission Date: 20190418
  Serious: No
  Sender: FDA-Public Use
  Company Number: CA-ROCHE-2165473

PATIENT
  Age: 38 Year
  Sex: Female

DRUGS (4)
  1. MARVELON [Concomitant]
     Active Substance: DESOGESTREL\ETHINYL ESTRADIOL
     Indication: CONTRACEPTION
  2. TOPIRAMATE. [Concomitant]
     Active Substance: TOPIRAMATE
  3. ZOPLICONE [Concomitant]
     Active Substance: ZOPICLONE
  4. OCREVUS [Suspect]
     Active Substance: OCRELIZUMAB
     Indication: PRIMARY PROGRESSIVE MULTIPLE SCLEROSIS
     Dosage: 300 MG AT DAY 0 AND 14, THEN 600 MG EVERY 6 MONTH
     Route: 042
     Dates: start: 20180227

REACTIONS (10)
  - Stress [Not Recovered/Not Resolved]
  - Clumsiness [Not Recovered/Not Resolved]
  - Cough [Not Recovered/Not Resolved]
  - Headache [Not Recovered/Not Resolved]
  - Weight increased [Not Recovered/Not Resolved]
  - Nasopharyngitis [Recovering/Resolving]
  - Malaise [Unknown]
  - Cystitis [Recovered/Resolved]
  - Therapeutic response shortened [Unknown]
  - Sensation of foreign body [Unknown]

NARRATIVE: CASE EVENT DATE: 20180314
